FAERS Safety Report 5166827-6 (Version None)
Quarter: 2006Q4

REPORT INFORMATION
  Report Type: 
  Country: None (occurrence: None)
  Receive Date: 20061207
  Receipt Date: 20061115
  Transmission Date: 20070319
  Serious: Yes (Other)
  Sender: FDA-Public Use
  Company Number: JP-MERCK-0612USA00403

PATIENT
  Age: 74 Year
  Sex: Female

DRUGS (5)
  1. FOSAMAX [Suspect]
     Indication: OSTEOPOROSIS
     Route: 048
     Dates: start: 20061003, end: 20061114
  2. FOSAMAX [Suspect]
     Route: 048
     Dates: start: 20060905, end: 20061002
  3. ALFAROL [Concomitant]
     Indication: OSTEOPOROSIS
     Route: 048
     Dates: start: 20060905, end: 20061128
  4. CALCIUM LACTATE [Concomitant]
     Indication: OSTEOPOROSIS
     Route: 048
     Dates: start: 20061003, end: 20061104
  5. CYANOCOBALAMIN [Concomitant]
     Indication: DIZZINESS
     Route: 048
     Dates: start: 20060905, end: 20061128

REACTIONS (3)
  - DERMATITIS [None]
  - DRY SKIN [None]
  - RASH PRURITIC [None]
